FAERS Safety Report 4584373-5 (Version None)
Quarter: 2005Q1

REPORT INFORMATION
  Report Type: 
  Country: None (occurrence: None)
  Receive Date: 20050216
  Receipt Date: 20040908
  Transmission Date: 20050727
  Serious: Yes (Death)
  Sender: FDA-Public Use
  Company Number: JP-BRISTOL-MYERS SQUIBB COMPANY-12695391

PATIENT
  Age: 73 Year
  Sex: Male

DRUGS (8)
  1. BLEOMYCIN [Suspect]
     Indication: TONGUE NEOPLASM MALIGNANT STAGE UNSPECIFIED
     Dosage: THERAPY DATES: 02 TO 16-JUL-2004 FOR A TOTAL OF 5 DAYS (37.5 MG TOTAL DOSAGE)
     Route: 042
     Dates: start: 20040617, end: 20040716
  2. TAKEPRON [Suspect]
     Indication: GASTRIC ULCER
     Route: 048
  3. NITOROL [Suspect]
     Indication: ANGINA PECTORIS
     Route: 048
  4. INDERAL LA [Suspect]
     Indication: ANGINA PECTORIS
     Route: 048
  5. ADALAT [Suspect]
     Indication: ANGINA PECTORIS
     Route: 048
  6. NORVASC [Suspect]
     Indication: ANGINA PECTORIS
     Route: 048
  7. BLOPRESS [Suspect]
     Indication: HYPERTENSION
     Route: 048
  8. CARDENALIN [Suspect]
     Indication: HYPERTENSION
     Route: 048

REACTIONS (6)
  - BLOOD PRESSURE DECREASED [None]
  - HEART RATE DECREASED [None]
  - INTERSTITIAL LUNG DISEASE [None]
  - MULTI-ORGAN FAILURE [None]
  - PNEUMOTHORAX [None]
  - PULMONARY FIBROSIS [None]
